FAERS Safety Report 6546290-0 (Version None)
Quarter: 2010Q1

REPORT INFORMATION
  Report Type: 
  Country: None (occurrence: None)
  Receive Date: 20100119
  Receipt Date: 20100104
  Transmission Date: 20100710
  Serious: Yes (Death, Other)
  Sender: FDA-Public Use
  Company Number: AUR-APL-2010-00105

PATIENT
  Age: 51 Year
  Sex: Male

DRUGS (3)
  1. METFORMIN HCL [Suspect]
     Dosage: ORAL
     Route: 048
  2. AMLODIPINE BESYLATE [Suspect]
     Dosage: ORAL
     Route: 048
  3. BETA-BLOCKER [Suspect]

REACTIONS (3)
  - COMPLETED SUICIDE [None]
  - DRUG TOXICITY [None]
  - INTENTIONAL DRUG MISUSE [None]
